FAERS Safety Report 11458049 (Version 1)
Quarter: 2015Q3

REPORT INFORMATION
  Report Type: Spontaneous
  Country: ES (occurrence: ES)
  Receive Date: 20150904
  Receipt Date: 20150904
  Transmission Date: 20151125
  Serious: Yes (Death)
  Sender: FDA-Public Use
  Company Number: ES-SA-2015SA133407

PATIENT
  Age: 58 Year
  Sex: Male
  Weight: 83 kg

DRUGS (18)
  1. EFIENT [Interacting]
     Active Substance: PRASUGREL HYDROCHLORIDE
     Indication: MYOCARDIAL ISCHAEMIA
     Route: 048
     Dates: start: 20150616, end: 20150713
  2. LEVOTHYROXINE. [Concomitant]
     Active Substance: LEVOTHYROXINE
     Route: 048
     Dates: start: 20150626
  3. SODIUM VALPROATE [Concomitant]
     Active Substance: VALPROATE SODIUM
     Dates: start: 20150706
  4. ACETYLSALICYLIC ACID [Interacting]
     Active Substance: ASPIRIN
     Indication: MYOCARDIAL ISCHAEMIA
     Route: 048
     Dates: start: 20150616, end: 20150713
  5. ESOMEPRAZOLE [Concomitant]
     Active Substance: ESOMEPRAZOLE
     Route: 048
     Dates: start: 20150616
  6. METAMIZOLE [Concomitant]
     Active Substance: METAMIZOLE
     Dates: start: 20150623
  7. PARACETAMOL [Concomitant]
     Active Substance: ACETAMINOPHEN
     Dates: start: 20150619
  8. IPRATROPIUM [Concomitant]
     Active Substance: IPRATROPIUM
     Dates: start: 20150707
  9. CLONAZEPAM. [Concomitant]
     Active Substance: CLONAZEPAM
     Dates: start: 20150707
  10. LEVETIRACETAM. [Concomitant]
     Active Substance: LEVETIRACETAM
     Dates: start: 20150701
  11. BUDESONIDE. [Concomitant]
     Active Substance: BUDESONIDE
     Dates: start: 20150707
  12. ACTRAPID [Concomitant]
     Active Substance: INSULIN HUMAN
     Dates: start: 20150627
  13. INSULIN GLARGINE [Concomitant]
     Active Substance: INSULIN GLARGINE
     Dates: start: 20150629
  14. LACOSAMIDE [Concomitant]
     Active Substance: LACOSAMIDE
     Dates: start: 20150709
  15. SOLOSTAR [Concomitant]
     Active Substance: DEVICE
  16. ENALAPRIL [Concomitant]
     Active Substance: ENALAPRIL
  17. CLEXANE [Suspect]
     Active Substance: ENOXAPARIN SODIUM
     Indication: MYOCARDIAL ISCHAEMIA
     Route: 048
     Dates: start: 20150616, end: 20150713
  18. CEFTAZIDIME. [Concomitant]
     Active Substance: CEFTAZIDIME
     Dates: start: 20150702, end: 20150709

REACTIONS (2)
  - Drug interaction [Unknown]
  - Haemoptysis [Fatal]

NARRATIVE: CASE EVENT DATE: 20150713
